FAERS Safety Report 20702862 (Version 2)
Quarter: 2022Q4

REPORT INFORMATION
  Report Type: Spontaneous
  Country: AU (occurrence: AU)
  Receive Date: 20220412
  Receipt Date: 20221102
  Transmission Date: 20230112
  Serious: Yes (Other)
  Sender: FDA-Public Use
  Company Number: AU-BRISTOL-MYERS SQUIBB COMPANY-2022-017921

PATIENT
  Sex: Female

DRUGS (1)
  1. OPDIVO [Suspect]
     Active Substance: NIVOLUMAB
     Indication: Oesophageal carcinoma
     Dosage: DOSE : UNAVAILABLE;     FREQ : FORTNIGHTLY
     Route: 065
     Dates: end: 202202

REACTIONS (4)
  - Gastric ulcer [Unknown]
  - Liver disorder [Unknown]
  - Rash pruritic [Unknown]
  - Inflammation [Unknown]
